FAERS Safety Report 4947252-7 (Version None)
Quarter: 2006Q1

REPORT INFORMATION
  Report Type: 
  Country: None (occurrence: None)
  Receive Date: 20060314
  Receipt Date: 20060301
  Transmission Date: 20060701
  Serious: Yes (Hospitalization, Other)
  Sender: FDA-Public Use
  Company Number: 200602214

PATIENT
  Age: 71 Year
  Sex: Female
  Weight: 77.1115 kg

DRUGS (2)
  1. BOTOX COSMETIC [Suspect]
     Indication: SKIN WRINKLING
     Dates: start: 20051201, end: 20051201
  2. BOTOX COSMETIC [Suspect]
     Indication: SKIN WRINKLING
     Dates: start: 19980101, end: 20051201

REACTIONS (18)
  - ABASIA [None]
  - ABDOMINAL PAIN UPPER [None]
  - DEHYDRATION [None]
  - DRUG INEFFECTIVE [None]
  - EAR PAIN [None]
  - FATIGUE [None]
  - FLATULENCE [None]
  - FOOD POISONING [None]
  - GROIN PAIN [None]
  - INJECTION SITE PAIN [None]
  - MOVEMENT DISORDER [None]
  - MUSCULAR WEAKNESS [None]
  - NAUSEA [None]
  - NEUTROPENIA [None]
  - PAIN [None]
  - PRURITUS [None]
  - RED BLOOD CELL SEDIMENTATION RATE ABNORMAL [None]
  - VIRAL INFECTION [None]
